FAERS Safety Report 14450028 (Version 3)
Quarter: 2018Q3

REPORT INFORMATION
  Report Type: Report from Study
  Country: US (occurrence: US)
  Receive Date: 20180129
  Receipt Date: 20180803
  Transmission Date: 20181010
  Serious: Yes (Other)
  Sender: FDA-Public Use
  Company Number: US-ROCHE-2036151

PATIENT
  Age: 59 Year
  Sex: Female
  Weight: 52.66 kg

DRUGS (3)
  1. LEXAPRO [Concomitant]
     Active Substance: ESCITALOPRAM OXALATE
     Indication: DEPRESSION
     Route: 048
     Dates: start: 20151125
  2. BACLOFEN. [Concomitant]
     Active Substance: BACLOFEN
     Indication: MULTIPLE SCLEROSIS
     Route: 048
     Dates: start: 20071205
  3. OCREVUS [Suspect]
     Active Substance: OCRELIZUMAB
     Indication: PRIMARY PROGRESSIVE MULTIPLE SCLEROSIS
     Route: 042
     Dates: start: 20170616

REACTIONS (9)
  - Productive cough [Not Recovered/Not Resolved]
  - Upper respiratory tract infection [Not Recovered/Not Resolved]
  - Sinusitis [Unknown]
  - Hypertension [Unknown]
  - Hip arthroplasty [Unknown]
  - Deep vein thrombosis [Unknown]
  - Tachycardia [Unknown]
  - Fall [Unknown]
  - Dyspnoea [Unknown]

NARRATIVE: CASE EVENT DATE: 20171118
